FAERS Safety Report 6915106-2 (Version None)
Quarter: 2010Q3

REPORT INFORMATION
  Report Type: 
  Country: None (occurrence: None)
  Receive Date: 20100805
  Receipt Date: 20100805
  Transmission Date: 20110219
  Serious: Yes (Life-Threatening, Hospitalization, Other)
  Sender: FDA-Public Use
  Company Number: None

PATIENT
  Age: 64 Year
  Sex: Male
  Weight: 83.9154 kg

DRUGS (1)
  1. BACTRIM [Suspect]
     Indication: URINARY TRACT INFECTION
     Dosage: ONE TABLET FOR 10 DAYS DAILY PO
     Route: 048
     Dates: start: 20081105, end: 20081114

REACTIONS (5)
  - COMA [None]
  - CORONARY ARTERY BYPASS [None]
  - ILL-DEFINED DISORDER [None]
  - PNEUMONIA [None]
  - PULMONARY HAEMORRHAGE [None]
